FAERS Safety Report 7549801-1 (Version None)
Quarter: 2011Q2

REPORT INFORMATION
  Report Type: 
  Country: None (occurrence: None)
  Receive Date: 20110615
  Receipt Date: 20060315
  Transmission Date: 20111010
  Serious: Yes (Death, Other)
  Sender: FDA-Public Use
  Company Number: PHMT2005CA00861

PATIENT
  Sex: Female

DRUGS (3)
  1. RISPERDAL [Concomitant]
  2. CLOZAPINE [Suspect]
     Dosage: UNK, UNK
     Dates: start: 20051128, end: 20051221
  3. VALPROIC ACID [Concomitant]

REACTIONS (5)
  - CARDIAC ARREST [None]
  - LOWER RESPIRATORY TRACT INFECTION [None]
  - ARRHYTHMIA [None]
  - RESPIRATORY ARREST [None]
  - HYPOTENSION [None]
